FAERS Safety Report 18161438 (Version 4)
Quarter: 2020Q4

REPORT INFORMATION
  Report Type: Report from Study
  Country: None (occurrence: US)
  Receive Date: 20200817
  Receipt Date: 20201124
  Transmission Date: 20210113
  Serious: Yes (Other)
  Sender: FDA-Public Use
  Company Number: US-ABBVIE-20K-163-3521590-00

PATIENT
  Sex: Male

DRUGS (5)
  1. VENCLEXTA [Suspect]
     Active Substance: VENETOCLAX
     Indication: CHRONIC LYMPHOCYTIC LEUKAEMIA
     Route: 048
     Dates: start: 20200203, end: 2020
  2. RITUXAN [Concomitant]
     Active Substance: RITUXIMAB
     Indication: CHRONIC LYMPHOCYTIC LEUKAEMIA
  3. BUMEX [Concomitant]
     Active Substance: BUMETANIDE
     Indication: PRODUCT USED FOR UNKNOWN INDICATION
  4. VENCLEXTA [Suspect]
     Active Substance: VENETOCLAX
     Route: 048
     Dates: start: 2020
  5. NORCO [Suspect]
     Active Substance: ACETAMINOPHEN\HYDROCODONE BITARTRATE
     Indication: BACK PAIN
     Route: 065

REACTIONS (21)
  - Insomnia [Unknown]
  - Feeling abnormal [Not Recovered/Not Resolved]
  - Decreased appetite [Not Recovered/Not Resolved]
  - Gait disturbance [Unknown]
  - Dehydration [Recovering/Resolving]
  - Pain [Unknown]
  - Cough [Unknown]
  - Tongue blistering [Unknown]
  - Dysstasia [Unknown]
  - Renal cell carcinoma [Not Recovered/Not Resolved]
  - Blood creatinine decreased [Unknown]
  - Balance disorder [Not Recovered/Not Resolved]
  - Lymphadenopathy [Unknown]
  - Malaise [Unknown]
  - Oral mucosal blistering [Unknown]
  - Back pain [Unknown]
  - Aphonia [Not Recovered/Not Resolved]
  - Swelling of eyelid [Unknown]
  - Asthenia [Unknown]
  - Blood pressure orthostatic decreased [Unknown]
  - Fatigue [Unknown]

NARRATIVE: CASE EVENT DATE: 2020
